FAERS Safety Report 6346862-2 (Version None)
Quarter: 2009Q3

REPORT INFORMATION
  Report Type: 
  Country: None (occurrence: None)
  Receive Date: 20090908
  Receipt Date: 20090908
  Transmission Date: 20100115
  Serious: Yes (Other)
  Sender: FDA-Public Use
  Company Number: None

PATIENT
  Age: 39 Year
  Sex: Male
  Weight: 83.0083 kg

DRUGS (2)
  1. VERAMYST [Suspect]
     Indication: NASAL CONGESTION
     Dosage: 2 SPRAYS PER DAY ONCE PER DAY NASAL 10 DAYS ROUGHLY
     Route: 045
     Dates: start: 20090824, end: 20090824
  2. VERAMYST [Suspect]
     Indication: NASAL CONGESTION
     Dosage: 2 SPRAYS PER DAY ONCE PER DAY NASAL 10 DAYS ROUGHLY
     Route: 045
     Dates: start: 20090902, end: 20090902

REACTIONS (1)
  - ARRHYTHMIA [None]
